FAERS Safety Report 20611704 (Version 1)
Quarter: 2022Q1

REPORT INFORMATION
  Report Type: Spontaneous
  Country: US (occurrence: None)
  Receive Date: 20220318
  Receipt Date: 20220318
  Transmission Date: 20220423
  Serious: Yes (Hospitalization)
  Sender: FDA-Public Use
  Company Number: None

PATIENT
  Age: 89 Year
  Sex: Male

DRUGS (1)
  1. CAPECITABINE [Suspect]
     Active Substance: CAPECITABINE
     Indication: Colon cancer
     Dosage: REQUENCY: TAKE 2 TABLETS (1,000 MG TOTAL) BY MOUTH 2 TIMES PER DAY FOR 14 DAYS, 7 DAYS OFF, REPEAT.?
     Route: 048
     Dates: start: 20220110

REACTIONS (2)
  - Eating disorder [None]
  - Weight decreased [None]

NARRATIVE: CASE EVENT DATE: 20220302
